FAERS Safety Report 4927682-X (Version None)
Quarter: 2006Q1

REPORT INFORMATION
  Report Type: 
  Country: None (occurrence: None)
  Receive Date: 20060228
  Receipt Date: 20041228
  Transmission Date: 20060701
  Serious: Yes (Hospitalization)
  Sender: FDA-Public Use
  Company Number: US-MERCK-0412USA03189

PATIENT
  Age: 43 Year
  Sex: Male
  Weight: 109 kg

DRUGS (9)
  1. VIOXX [Suspect]
     Indication: BACK INJURY
     Route: 048
     Dates: start: 20000320, end: 20040709
  2. NORVASC [Concomitant]
     Route: 048
  3. LIPITOR [Concomitant]
     Route: 048
  4. ECOTRIN [Concomitant]
     Route: 048
  5. NITROGLYCERIN [Concomitant]
     Route: 048
  6. PLAVIX [Concomitant]
     Route: 048
  7. MAXZIDE [Concomitant]
     Route: 048
  8. COREG [Concomitant]
     Route: 048
  9. VIAGRA [Concomitant]
     Route: 048

REACTIONS (4)
  - CARDIAC DISORDER [None]
  - CORONARY ARTERY DISEASE [None]
  - INJURY [None]
  - MYOCARDIAL INFARCTION [None]
